FAERS Safety Report 4308633-8 (Version None)
Quarter: 2004Q1

REPORT INFORMATION
  Report Type: 
  Country: None (occurrence: None)
  Receive Date: 20040226
  Receipt Date: 20031007
  Transmission Date: 20041129
  Serious: No
  Sender: FDA-Public Use
  Company Number: 202764

PATIENT
  Age: 12 Year
  Sex: Female
  Weight: 26.3 kg

DRUGS (6)
  1. NUTROPIN [Suspect]
     Indication: HYPOPITUITARISM
     Dosage: 1.4 MG, QD, SUBCUTANEOUS
     Route: 058
     Dates: start: 20020618, end: 20030717
  2. ALBUTEROL (ALBUTEROL, ALBUTEROL SULFATE) [Concomitant]
  3. BICITRA (SODIUM CITRATE, CITRIC ACID) [Concomitant]
  4. LEVOXYL (LEVOXYTHROXINE SODIUM) [Concomitant]
  5. RHINOCORT [Concomitant]
  6. SINGULAIR [Concomitant]

REACTIONS (1)
  - SLIPPED FEMORAL EPIPHYSIS [None]
